FAERS Safety Report 5787004-1 (Version None)
Quarter: 2008Q2

REPORT INFORMATION
  Report Type: 
  Country: None (occurrence: None)
  Receive Date: 20080623
  Receipt Date: 20080623
  Transmission Date: 20081010
  Serious: Yes (Hospitalization)
  Sender: FDA-Public Use
  Company Number: None

PATIENT
  Age: 67 Year
  Sex: Female
  Weight: 101.2 kg

DRUGS (2)
  1. CLOFARABINE [Suspect]
     Indication: LYMPHOMA
     Dosage: 2.25 MG/M2 QD X 5 DAYS IV
     Route: 042
     Dates: start: 20080505, end: 20080509
  2. CLOFARABINE [Suspect]
     Indication: LYMPHOMA
     Dosage: 2.25 MG/M2 QD X 5 DAYS IV
     Route: 042
     Dates: start: 20080602, end: 20080606

REACTIONS (3)
  - ANAEMIA [None]
  - LEUKOPENIA [None]
  - NEUTROPENIA [None]
